FAERS Safety Report 6253910-7 (Version None)
Quarter: 2009Q2

REPORT INFORMATION
  Report Type: 
  Country: None (occurrence: None)
  Receive Date: 20090630
  Receipt Date: 20090630
  Transmission Date: 20091009
  Serious: Yes (Other)
  Sender: FDA-Public Use
  Company Number: None

PATIENT
  Sex: Female
  Weight: 71.4415 kg

DRUGS (1)
  1. PROVIGIL [Suspect]
     Indication: FATIGUE
     Dosage: 1MG DAILY PO
     Route: 048
     Dates: start: 20090611, end: 20090622

REACTIONS (3)
  - BLOOD URIC ACID INCREASED [None]
  - GOUT [None]
  - OEDEMA PERIPHERAL [None]
